FAERS Safety Report 18825653 (Version 1)
Quarter: 2021Q1

REPORT INFORMATION
  Report Type: Spontaneous
  Country: US (occurrence: US)
  Receive Date: 20210201
  Receipt Date: 20210201
  Transmission Date: 20210419
  Serious: No
  Sender: FDA-Public Use
  Company Number: US-ABBVIE-20K-163-3323554-00

PATIENT
  Age: 50 Year
  Sex: Female

DRUGS (2)
  1. HUMIRA [Suspect]
     Active Substance: ADALIMUMAB
     Indication: PSORIATIC ARTHROPATHY
  2. HUMIRA [Suspect]
     Active Substance: ADALIMUMAB
     Indication: PSORIASIS
     Route: 058
     Dates: start: 202001

REACTIONS (5)
  - Wrong technique in product usage process [Unknown]
  - Nervousness [Unknown]
  - Injury associated with device [Unknown]
  - Tremor [Unknown]
  - Device issue [Unknown]

NARRATIVE: CASE EVENT DATE: 20200228
